FAERS Safety Report 7124896-8 (Version None)
Quarter: 2010Q4

REPORT INFORMATION
  Report Type: 
  Country: None (occurrence: None)
  Receive Date: 20101129
  Receipt Date: 20101116
  Transmission Date: 20110411
  Serious: Yes (Hospitalization)
  Sender: FDA-Public Use
  Company Number: PHHY2010US78299

PATIENT
  Sex: Male

DRUGS (2)
  1. VALTURNA [Suspect]
     Indication: HYPERTENSION
     Dosage: 300/320 MG
  2. BYSTOLIC [Concomitant]

REACTIONS (1)
  - CHEST PAIN [None]
